FAERS Safety Report 6509594-3 (Version None)
Quarter: 2009Q4

REPORT INFORMATION
  Report Type: 
  Country: None (occurrence: None)
  Receive Date: 20091222
  Receipt Date: 20091216
  Transmission Date: 20100525
  Serious: Yes (Life-Threatening, Hospitalization)
  Sender: FDA-Public Use
  Company Number: FR-SANOFI-AVENTIS-200913746FR

PATIENT
  Age: 46 Year
  Sex: Female

DRUGS (6)
  1. LEFLUNOMIDE [Suspect]
     Dosage: DOSE UNIT: 20 MG
     Route: 048
     Dates: start: 20070901
  2. CORTANCYL [Suspect]
     Route: 048
     Dates: start: 20080901, end: 20090101
  3. CORTANCYL [Suspect]
     Route: 048
     Dates: start: 20090101
  4. IXPRIM [Concomitant]
     Route: 048
  5. SYMBICORT [Concomitant]
     Route: 048
  6. FORADIL [Concomitant]
     Indication: ASTHMA
     Route: 048

REACTIONS (5)
  - ACUTE PULMONARY OEDEMA [None]
  - ASTHENIA [None]
  - CONGESTIVE CARDIOMYOPATHY [None]
  - DYSPNOEA [None]
  - TACHYCARDIA [None]
